FAERS Safety Report 20901770 (Version 1)
Quarter: 2022Q2

REPORT INFORMATION
  Report Type: Spontaneous
  Country: US (occurrence: US)
  Receive Date: 20220601
  Receipt Date: 20220601
  Transmission Date: 20220720
  Serious: No
  Sender: FDA-Public Use
  Company Number: US-BRISTOL-MYERS SQUIBB COMPANY-2022-047444

PATIENT
  Age: 68 Year
  Sex: Male

DRUGS (1)
  1. REVLIMID [Suspect]
     Active Substance: LENALIDOMIDE
     Indication: Plasma cell myeloma
     Dosage: 1 CAPSULE (25 MG) DAILY FOR 14 DAYS ON DAYS 1-14, FOLLOWED BY 7 DAYS OFF
     Route: 048
     Dates: start: 20220422

REACTIONS (2)
  - COVID-19 [Unknown]
  - Off label use [Unknown]
